FAERS Safety Report 15747282 (Version 1)
Quarter: 2018Q4

REPORT INFORMATION
  Report Type: Spontaneous
  Country: US (occurrence: US)
  Receive Date: 20181220
  Receipt Date: 20181220
  Transmission Date: 20190205
  Serious: No
  Sender: FDA-Public Use
  Company Number: US-AVADEL SPECIALTY PHARMACEUTICALS, LLC-2018AVA00373

PATIENT
  Age: 82 Year
  Sex: Male

DRUGS (3)
  1. CETIRIZINE HCL [Concomitant]
     Active Substance: CETIRIZINE HYDROCHLORIDE
  2. NOCTIVA [Suspect]
     Active Substance: DESMOPRESSIN ACETATE
     Indication: URINARY RETENTION
     Dosage: 0.83 ?G, 1X/DAY 30 MINUTES BEFORE BED
     Route: 045
     Dates: start: 20180906, end: 20180920
  3. MULTIVITAMINS [Concomitant]
     Active Substance: VITAMINS

REACTIONS (5)
  - Insomnia [Unknown]
  - Upper-airway cough syndrome [Unknown]
  - Drug ineffective for unapproved indication [Recovered/Resolved]
  - Rhinorrhoea [Unknown]
  - Headache [Unknown]

NARRATIVE: CASE EVENT DATE: 201809
